FAERS Safety Report 8037138-6 (Version None)
Quarter: 2012Q1

REPORT INFORMATION
  Report Type: 
  Country: None (occurrence: None)
  Receive Date: 20120111
  Receipt Date: 20111229
  Transmission Date: 20120608
  Serious: Yes (Death)
  Sender: FDA-Public Use
  Company Number: US-SANOFI-AVENTIS-2012SA001546

PATIENT
  Age: 49 Year
  Sex: Female

DRUGS (5)
  1. DIAZEPAM [Suspect]
     Route: 048
  2. ZOLPIDEM TARTRATE [Suspect]
     Route: 048
  3. VALPROATE SODIUM [Suspect]
     Route: 048
  4. METAMFETAMINE HYDROCHLORIDE [Suspect]
     Route: 048
  5. ETHANOL [Suspect]
     Route: 048

REACTIONS (1)
  - COMPLETED SUICIDE [None]
